FAERS Safety Report 9640660 (Version 2)
Quarter: 2013Q4

REPORT INFORMATION
  Report Type: Spontaneous
  Country: US (occurrence: US)
  Receive Date: 20131023
  Receipt Date: 20131023
  Transmission Date: 20140711
  Serious: Yes (Other)
  Sender: FDA-Public Use
  Company Number: US-PFIZER INC-2013292487

PATIENT
  Age: 50 Year
  Sex: Female
  Weight: 83.9 kg

DRUGS (19)
  1. LYRICA [Suspect]
     Indication: FIBROMYALGIA
     Dosage: UNK, 2X/DAY
  2. LYRICA [Suspect]
     Dosage: 75 MG, 3X/DAY
  3. ATORVASTATIN CALCIUM [Suspect]
     Indication: BLOOD CHOLESTEROL INCREASED
     Dosage: 20 MG, DAILY
  4. LEVOTHYROXINE [Concomitant]
     Indication: HYPOTHYROIDISM
     Dosage: 75 UG, 1X/DAY
  5. NEXIUM [Concomitant]
     Indication: GASTROOESOPHAGEAL REFLUX DISEASE
     Dosage: 40 MG, 1X/DAY
  6. NEXIUM [Concomitant]
     Indication: IRRITABLE BOWEL SYNDROME
  7. NEXIUM [Concomitant]
     Indication: GASTRIC DISORDER
  8. PROPRANOLOL [Concomitant]
     Indication: MIGRAINE
     Dosage: 10 MG, 1X/DAY
  9. ACONITUM [Concomitant]
     Indication: MUSCLE SPASMS
     Dosage: UNK, 1X/DAY
  10. VENASTAT [Concomitant]
     Indication: MUSCLE SPASMS
     Dosage: UNK, 1X/DAY
  11. KLOR-CON [Concomitant]
     Indication: ANTICOAGULANT THERAPY
     Dosage: 10 MG  (FREQUENCY UNKNOWN)
  12. HYDROCHLOROTHIAZIDE/TRIAMTERENE [Concomitant]
     Indication: ANTICOAGULANT THERAPY
     Dosage: TRIAMTERENE 37.5 MG / HYDROCHLOROTHIAZIDE 25 MG, 1X/DAY
  13. CELEBREX [Concomitant]
     Indication: ARTHRITIS
     Dosage: 200 MG, 1X/DAY
  14. PROPAFENONE [Concomitant]
     Indication: ATRIAL FIBRILLATION
     Dosage: 150 MG, 2X/DAY
  15. MAGNESIUM [Concomitant]
     Indication: MINERAL SUPPLEMENTATION
     Dosage: 250 MG, UNK
  16. VITAMIN C [Concomitant]
     Indication: SUPPLEMENTATION THERAPY
     Dosage: 500 MG, UNK
  17. VITAMIN B3 [Concomitant]
     Indication: SUPPLEMENTATION THERAPY
     Dosage: UNK
  18. VITAMIN B15 [Concomitant]
     Indication: SUPPLEMENTATION THERAPY
     Dosage: UNK
  19. VITAMIN B12 [Concomitant]
     Indication: SUPPLEMENTATION THERAPY
     Dosage: UNK

REACTIONS (4)
  - Weight increased [Not Recovered/Not Resolved]
  - Memory impairment [Not Recovered/Not Resolved]
  - Hypercholesterolaemia [Not Recovered/Not Resolved]
  - Drug dispensing error [Unknown]
